FAERS Safety Report 17362875 (Version 2)
Quarter: 2021Q1

REPORT INFORMATION
  Report Type: Spontaneous
  Country: US (occurrence: US)
  Receive Date: 20200203
  Receipt Date: 20210131
  Transmission Date: 20210419
  Serious: Yes (Other)
  Sender: FDA-Public Use
  Company Number: US-ABBVIE-20K-163-3256823-00

PATIENT
  Sex: Female

DRUGS (4)
  1. LUPRON DEPOT [Suspect]
     Active Substance: LEUPROLIDE ACETATE
     Indication: ENDOMETRIOSIS
     Route: 065
  2. PREMARIN [Concomitant]
     Active Substance: ESTROGENS, CONJUGATED
     Indication: PRODUCT USED FOR UNKNOWN INDICATION
  3. ORILISSA [Suspect]
     Active Substance: ELAGOLIX SODIUM
     Indication: ENDOMETRIOSIS
     Route: 048
  4. NORETHINDRONE. [Concomitant]
     Active Substance: NORETHINDRONE
     Indication: PRODUCT USED FOR UNKNOWN INDICATION

REACTIONS (16)
  - Post procedural complication [Unknown]
  - Hypoaesthesia [Unknown]
  - Endometriosis [Unknown]
  - Anxiety [Unknown]
  - Morning sickness [Unknown]
  - Surgery [Unknown]
  - Neuralgia [Unknown]
  - Menopausal symptoms [Unknown]
  - Arthralgia [Unknown]
  - Intentional self-injury [Unknown]
  - Myalgia [Unknown]
  - Vomiting [Unknown]
  - Depression [Unknown]
  - Cerebral thrombosis [Unknown]
  - Syncope [Unknown]
  - Hot flush [Unknown]
